FAERS Safety Report 10098395 (Version 2)
Quarter: 2014Q3

REPORT INFORMATION
  Report Type: Spontaneous
  Country: JP (occurrence: None)
  Receive Date: 20140421
  Receipt Date: 20140703
  Transmission Date: 20150326
  Serious: Yes (Death, Other)
  Sender: FDA-Public Use
  Company Number: ABR_01586_2014

PATIENT
  Sex: Female
  Weight: .6 kg

DRUGS (4)
  1. AMPICILLIN [Concomitant]
     Active Substance: AMPICILLIN
  2. RITODRINE HYDROCHLORIDE [Concomitant]
     Active Substance: RITODRINE HYDROCHLORIDE
  3. AMOXICILLIN TRIHYDRATE [Concomitant]
     Active Substance: AMOXICILLIN
  4. ERYTHROMYCIN STEARATE [Suspect]
     Active Substance: ERYTHROMYCIN STEARATE
     Indication: FOETAL EXPOSURE TIMING UNSPECIFIED
     Route: 064
     Dates: start: 20080221, end: 20140222

REACTIONS (8)
  - Neonatal asphyxia [None]
  - Multi-organ failure [None]
  - Premature baby [None]
  - Maternal drugs affecting foetus [None]
  - Bronchopulmonary dysplasia [None]
  - Pulmonary hypertension [None]
  - Intraventricular haemorrhage [None]
  - Apgar score low [None]
